FAERS Safety Report 18400264 (Version 8)
Quarter: 2025Q1

REPORT INFORMATION
  Report Type: Spontaneous
  Country: US (occurrence: US)
  Receive Date: 20201019
  Receipt Date: 20250212
  Transmission Date: 20250409
  Serious: Yes (Other)
  Sender: PFIZER
  Company Number: US-PFIZER INC-2020401665

PATIENT
  Age: 65 Year
  Sex: Female

DRUGS (1)
  1. XELJANZ XR [Suspect]
     Active Substance: TOFACITINIB CITRATE
     Dosage: 11 MG, 1X/DAY
     Route: 048

REACTIONS (11)
  - Polyarthritis [Unknown]
  - Pain [Unknown]
  - Visual impairment [Unknown]
  - Movement disorder [Unknown]
  - Therapeutic product effect incomplete [Unknown]
  - Hyperlipidaemia [Unknown]
  - Arthritis [Unknown]
  - Blood cholesterol abnormal [Unknown]
  - Arthralgia [Unknown]
  - Musculoskeletal stiffness [Unknown]
  - Pain in extremity [Unknown]
